FAERS Safety Report 8130408-2 (Version None)
Quarter: 2012Q1

REPORT INFORMATION
  Report Type: 
  Country: None (occurrence: None)
  Receive Date: 20120210
  Receipt Date: 20120210
  Transmission Date: 20120608
  Serious: Yes (Other)
  Sender: FDA-Public Use
  Company Number: PHFR2012GB001009

PATIENT
  Age: 60 Year
  Sex: Female

DRUGS (1)
  1. DICLOFENAC SODIUM [Suspect]

REACTIONS (2)
  - PERICARDITIS [None]
  - ATRIAL FIBRILLATION [None]
